FAERS Safety Report 9289484 (Version 2)
Quarter: 2013Q2

REPORT INFORMATION
  Report Type: Report from Study
  Country: US (occurrence: US)
  Receive Date: 20130514
  Receipt Date: 20130626
  Transmission Date: 20140414
  Serious: Yes (Hospitalization)
  Sender: FDA-Public Use
  Company Number: US-ABBOTT-13P-163-1086356-00

PATIENT
  Age: 54 Year
  Sex: Male
  Weight: 104.42 kg

DRUGS (17)
  1. HUMIRA [Suspect]
     Indication: PSORIATIC ARTHROPATHY
     Dates: start: 2011, end: 201209
  2. HUMIRA [Suspect]
     Indication: PSORIASIS
  3. CYMBALTA [Concomitant]
     Indication: ANTIDEPRESSANT THERAPY
  4. ABILIFY [Concomitant]
     Indication: ANTIDEPRESSANT THERAPY
  5. REGLAN [Concomitant]
     Indication: GASTRIC DISORDER
  6. FOLIC ACID [Concomitant]
     Indication: PRODUCT USED FOR UNKNOWN INDICATION
  7. LASIX [Concomitant]
     Indication: OEDEMA
  8. LOTENSIN [Concomitant]
     Indication: BLOOD PRESSURE ABNORMAL
  9. LOTENSIN [Concomitant]
     Indication: DIABETES MELLITUS
  10. AMARYL [Concomitant]
     Indication: PRODUCT USED FOR UNKNOWN INDICATION
  11. NORVASC [Concomitant]
     Indication: BLOOD PRESSURE ABNORMAL
  12. SYNTHROID [Concomitant]
     Indication: THYROID DISORDER
  13. HYDRALAZINE [Concomitant]
     Indication: BLOOD PRESSURE ABNORMAL
  14. ANDROGEL [Concomitant]
     Indication: BLOOD TESTOSTERONE DECREASED
  15. HYDROCODONE [Concomitant]
     Indication: PAIN
  16. METHADONE [Concomitant]
     Indication: PAIN
  17. XANAX [Concomitant]
     Indication: ANXIETY

REACTIONS (5)
  - Pulmonary necrosis [Unknown]
  - Renal failure [Recovering/Resolving]
  - Ankle deformity [Unknown]
  - Gait disturbance [Not Recovered/Not Resolved]
  - Pneumonia [Unknown]
